FAERS Safety Report 7504459-2 (Version None)
Quarter: 2011Q2

REPORT INFORMATION
  Report Type: 
  Country: None (occurrence: None)
  Receive Date: 20110525
  Receipt Date: 20091122
  Transmission Date: 20111010
  Serious: Yes (Death, Other)
  Sender: FDA-Public Use
  Company Number: US-BAYER-200940175NA

PATIENT
  Age: 72 Year
  Sex: Male
  Weight: 98 kg

DRUGS (17)
  1. HEPARIN [Concomitant]
     Dosage: 5000UNITS
     Route: 042
     Dates: start: 19980724, end: 19980724
  2. PROTAMINE SULFATE [Concomitant]
     Dosage: 300MG
     Route: 042
     Dates: start: 19980820, end: 19980820
  3. ALBUMIN (HUMAN) [Concomitant]
     Dosage: 250ML
     Route: 042
  4. HEPARIN [Concomitant]
     Dosage: 2500UNITS
     Route: 042
     Dates: start: 19980720, end: 19980720
  5. NORVASC [Concomitant]
     Dosage: 5MG
     Route: 048
     Dates: start: 19980801
  6. ACETYLSALICYLIC ACID SRT [Concomitant]
     Dosage: 325MG
     Route: 048
     Dates: start: 19980801
  7. ATENOLOL [Concomitant]
     Dosage: 50MG
     Route: 048
     Dates: start: 19980724
  8. PLASMA [Concomitant]
     Dosage: 4 UNITS
     Dates: start: 19980820
  9. TRASYLOL [Suspect]
     Indication: CORONARY ARTERY BYPASS
     Dosage: 1 ML, ONCE, INITIAL TEST DOSE
     Route: 042
     Dates: start: 19980820, end: 19980820
  10. TRASYLOL [Suspect]
     Dosage: 200ML PUMP PRIME
     Route: 042
     Dates: start: 19980820, end: 19980820
  11. LISINOPRIL [Concomitant]
     Route: 048
  12. IBUPROFEN [Concomitant]
     Route: 048
  13. TRASYLOL [Suspect]
     Dosage: 50 ML/HR INFUSION
     Route: 042
     Dates: start: 19980820, end: 19980820
  14. LOTREL [Concomitant]
     Dosage: 5/10MG
     Route: 048
     Dates: end: 19980801
  15. NITROGLYCERIN [Concomitant]
     Dosage: 0.25MG
     Route: 048
  16. GLIPIZIDE [Concomitant]
     Dosage: 5MG
     Route: 048
  17. PLAVIX [Concomitant]
     Dosage: 75MG
     Route: 048
     Dates: start: 19980801

REACTIONS (13)
  - MULTI-ORGAN FAILURE [None]
  - RENAL INJURY [None]
  - STRESS [None]
  - ANXIETY [None]
  - DEATH [None]
  - UNEVALUABLE EVENT [None]
  - EMOTIONAL DISTRESS [None]
  - FEAR [None]
  - PAIN [None]
  - INJURY [None]
  - RENAL FAILURE [None]
  - ANHEDONIA [None]
  - RENAL IMPAIRMENT [None]
